FAERS Safety Report 14164411 (Version 1)
Quarter: 2017Q4

REPORT INFORMATION
  Report Type: Spontaneous
  Country: US (occurrence: US)
  Receive Date: 20171107
  Receipt Date: 20171107
  Transmission Date: 20180321
  Serious: No
  Sender: FDA-Public Use
  Company Number: US-AMGEN-USASP2017166638

PATIENT
  Age: 50 Year
  Sex: Male

DRUGS (1)
  1. ENBREL [Suspect]
     Active Substance: ETANERCEPT
     Indication: PSORIATIC ARTHROPATHY
     Dosage: 50 MG, QWK
     Route: 058
     Dates: start: 201710, end: 201710

REACTIONS (3)
  - Headache [Recovering/Resolving]
  - Influenza like illness [Recovering/Resolving]
  - Acrochordon [Recovered/Resolved]

NARRATIVE: CASE EVENT DATE: 201710
